FAERS Safety Report 16135607 (Version 2)
Quarter: 2019Q2

REPORT INFORMATION
  Report Type: Spontaneous
  Country: CA (occurrence: CA)
  Receive Date: 20190329
  Receipt Date: 20190621
  Transmission Date: 20190711
  Serious: Yes (Hospitalization, Disabling, Other)
  Sender: FDA-Public Use
  Company Number: CA-ASTRAZENECA-2019SE47223

PATIENT
  Age: 62 Year
  Sex: Male

DRUGS (4)
  1. VITALUX [Concomitant]
     Active Substance: MINERALS\VITAMINS
  2. FORXIGA [Suspect]
     Active Substance: DAPAGLIFLOZIN
     Indication: DIABETES MELLITUS
     Dosage: 10.0MG UNKNOWN
     Route: 048
     Dates: start: 20190107, end: 20190219
  3. MULTIVITAMIN [Concomitant]
     Active Substance: VITAMINS
  4. METAMUCIL [Concomitant]
     Active Substance: PLANTAGO SEED

REACTIONS (5)
  - Fournier^s gangrene [Recovered/Resolved]
  - Cyst [Unknown]
  - Sepsis [Unknown]
  - Diabetes mellitus [Unknown]
  - Scrotal abscess [Unknown]

NARRATIVE: CASE EVENT DATE: 20190223
